FAERS Safety Report 8391408-0 (Version None)
Quarter: 2012Q2

REPORT INFORMATION
  Report Type: 
  Country: None (occurrence: None)
  Receive Date: 20120529
  Receipt Date: 20120517
  Transmission Date: 20120825
  Serious: Yes (Hospitalization)
  Sender: FDA-Public Use
  Company Number: US-JNJFOC-20090100306

PATIENT
  Sex: Female
  Weight: 95.71 kg

DRUGS (2)
  1. ORTHO EVRA [Suspect]
     Indication: MENSTRUAL DISORDER
     Route: 062
     Dates: start: 20050417, end: 20050424
  2. ORTHO EVRA [Suspect]
     Indication: CONTRACEPTION
     Route: 062
     Dates: start: 20050417, end: 20050424

REACTIONS (3)
  - MIGRAINE [None]
  - STATUS EPILEPTICUS [None]
  - CEREBROVASCULAR ACCIDENT [None]
